FAERS Safety Report 25287592 (Version 1)
Quarter: 2025Q2

REPORT INFORMATION
  Report Type: Other
  Country: FR (occurrence: FR)
  Receive Date: 20250509
  Receipt Date: 20250509
  Transmission Date: 20250717
  Serious: Yes (Hospitalization)
  Sender: ZYDUS PHARM
  Company Number: None

PATIENT

DRUGS (1)
  1. SILDENAFIL [Suspect]
     Active Substance: SILDENAFIL
     Indication: Product used for unknown indication
     Route: 065
     Dates: start: 20240928

REACTIONS (3)
  - High risk sexual behaviour [Unknown]
  - Coma [Recovered/Resolved]
  - Substance abuser [Unknown]

NARRATIVE: CASE EVENT DATE: 20240928
